FAERS Safety Report 17945428 (Version 1)
Quarter: 2020Q2

REPORT INFORMATION
  Report Type: Spontaneous
  Country: IE (occurrence: IE)
  Receive Date: 20200625
  Receipt Date: 20200625
  Transmission Date: 20200714
  Serious: Yes (Life-Threatening, Other)
  Sender: FDA-Public Use
  Company Number: NVSC2020IE175521

PATIENT
  Sex: Female
  Weight: 72.1 kg

DRUGS (16)
  1. CARBOPLATIN. [Suspect]
     Active Substance: CARBOPLATIN
     Indication: DIFFUSE LARGE B-CELL LYMPHOMA
     Dosage: UNK (UNK (R-ICE))
     Route: 065
     Dates: end: 2016
  2. MABTHERA [Suspect]
     Active Substance: RITUXIMAB
     Indication: DIFFUSE LARGE B-CELL LYMPHOMA
     Dosage: UNKUNK (R-CHOP)
     Route: 065
     Dates: end: 201511
  3. DEXAMETHASONE. [Suspect]
     Active Substance: DEXAMETHASONE
     Indication: DIFFUSE LARGE B-CELL LYMPHOMA
     Dosage: UNK
     Route: 065
     Dates: start: 2019, end: 2020
  4. MABTHERA [Suspect]
     Active Substance: RITUXIMAB
     Dosage: UNK (R-GDP)
     Route: 065
     Dates: start: 2019, end: 2020
  5. CYCLOPHOSPHAMIDE. [Suspect]
     Active Substance: CYCLOPHOSPHAMIDE
     Indication: DIFFUSE LARGE B-CELL LYMPHOMA
     Dosage: UNK (UNK (R-CHOP)
     Route: 065
     Dates: end: 201511
  6. MABTHERA [Suspect]
     Active Substance: RITUXIMAB
     Dosage: UNK (R-DHAP)
     Route: 065
     Dates: end: 2016
  7. CISPLATIN. [Suspect]
     Active Substance: CISPLATIN
     Indication: DIFFUSE LARGE B-CELL LYMPHOMA
     Dosage: UNK (R-DHAP)
     Route: 065
     Dates: end: 2016
  8. ETOPOSIDE. [Suspect]
     Active Substance: ETOPOSIDE
     Indication: DIFFUSE LARGE B-CELL LYMPHOMA
     Dosage: UNK (R-ICE)
     Route: 065
     Dates: end: 2016
  9. CYTARABINE. [Suspect]
     Active Substance: CYTARABINE
     Indication: DIFFUSE LARGE B-CELL LYMPHOMA
     Dosage: UNK (R-DHAP)
     Route: 065
     Dates: end: 2016
  10. CISPLATIN. [Suspect]
     Active Substance: CISPLATIN
     Dosage: UNK (R-GDP)
     Route: 065
     Dates: start: 2019, end: 2020
  11. DOXORUBICIN HYDROCHLORIDE. [Suspect]
     Active Substance: DOXORUBICIN HYDROCHLORIDE
     Indication: DIFFUSE LARGE B-CELL LYMPHOMA
     Dosage: UNK (R-CHOP)
     Route: 065
     Dates: end: 201511
  12. MABTHERA [Suspect]
     Active Substance: RITUXIMAB
     Dosage: UNK (R-ICE)
     Route: 065
     Dates: end: 2016
  13. VINCRISTINE [Suspect]
     Active Substance: VINCRISTINE
     Indication: DIFFUSE LARGE B-CELL LYMPHOMA
     Dosage: UNK (R-CHOP)
     Route: 065
     Dates: end: 201511
  14. IFOSFAMIDE. [Suspect]
     Active Substance: IFOSFAMIDE
     Indication: DIFFUSE LARGE B-CELL LYMPHOMA
     Dosage: UNK (UNK (R-ICE))
     Route: 065
     Dates: end: 2016
  15. MABTHERA [Suspect]
     Active Substance: RITUXIMAB
     Dosage: UNK
     Route: 065
  16. GEMCITABINE HYDROCHLORIDE. [Suspect]
     Active Substance: GEMCITABINE HYDROCHLORIDE
     Indication: DIFFUSE LARGE B-CELL LYMPHOMA
     Dosage: UNK (R-GDP)
     Route: 065
     Dates: start: 2019, end: 2020

REACTIONS (2)
  - Thrombotic thrombocytopenic purpura [Unknown]
  - Diffuse large B-cell lymphoma recurrent [Unknown]
